FAERS Safety Report 9358407 (Version 3)
Quarter: 2013Q3

REPORT INFORMATION
  Report Type: Spontaneous
  Country: GR (occurrence: GR)
  Receive Date: 20130620
  Receipt Date: 20130718
  Transmission Date: 20140515
  Serious: Yes (Hospitalization)
  Sender: FDA-Public Use
  Company Number: PHHY2013GR063094

PATIENT
  Age: 70 Year
  Sex: Female

DRUGS (2)
  1. AFINITOR [Suspect]
     Indication: BREAST CANCER
  2. AROMASIN [Concomitant]

REACTIONS (1)
  - Cholecystitis [Recovered/Resolved]
